FAERS Safety Report 9261308 (Version 1)
Quarter: 2013Q2

REPORT INFORMATION
  Report Type: Spontaneous
  Country: JP (occurrence: JP)
  Receive Date: 20130429
  Receipt Date: 20130429
  Transmission Date: 20140414
  Serious: Yes (Other)
  Sender: FDA-Public Use
  Company Number: JP-GLAXOSMITHKLINE-B0872452A

PATIENT
  Age: 63 Year
  Sex: Female

DRUGS (4)
  1. TYKERB [Suspect]
     Indication: BREAST CANCER
     Dosage: 1250MG PER DAY
     Route: 048
     Dates: start: 20121206, end: 20130207
  2. XELODA [Suspect]
     Indication: PRODUCT USED FOR UNKNOWN INDICATION
     Dosage: 1500MG TWICE PER DAY
     Route: 048
     Dates: start: 20121206, end: 20130207
  3. BARACLUDE [Concomitant]
     Route: 048
     Dates: start: 20121206
  4. UNKNOWN DRUG [Concomitant]

REACTIONS (2)
  - Interstitial lung disease [Recovered/Resolved]
  - Cough [Unknown]
